FAERS Safety Report 25395084 (Version 1)
Quarter: 2025Q2

REPORT INFORMATION
  Report Type: Spontaneous
  Country: HU (occurrence: HU)
  Receive Date: 20250604
  Receipt Date: 20250604
  Transmission Date: 20250717
  Serious: Yes (Other)
  Sender: ROCHE
  Company Number: HU-ROCHE-10000298204

PATIENT

DRUGS (3)
  1. PHESGO [Suspect]
     Active Substance: HYALURONIDASE-ZZXF\PERTUZUMAB\TRASTUZUMAB
     Indication: Product used for unknown indication
     Route: 065
  2. LETROZOLE [Concomitant]
     Active Substance: LETROZOLE
  3. luprolide [Concomitant]

REACTIONS (6)
  - Brain fog [Unknown]
  - Muscle spasms [Unknown]
  - Dry eye [Unknown]
  - Vulvovaginal dryness [Unknown]
  - Hot flush [Unknown]
  - Arthralgia [Unknown]
